FAERS Safety Report 7553944-6 (Version None)
Quarter: 2011Q2

REPORT INFORMATION
  Report Type: 
  Country: None (occurrence: None)
  Receive Date: 20110617
  Receipt Date: 20110601
  Transmission Date: 20111010
  Serious: Yes (Hospitalization)
  Sender: FDA-Public Use
  Company Number: FR-PFIZER INC-2011131130

PATIENT
  Age: 81 Year
  Sex: Female

DRUGS (2)
  1. IODIXANOL [Suspect]
     Indication: CATHETERISATION CARDIAC
     Dosage: 1 DF, SINGLE
     Dates: start: 20110209, end: 20110209
  2. ATARAX [Suspect]
     Indication: PREMEDICATION
     Dosage: 1 DF, SINGLE
     Route: 048
     Dates: start: 20110208, end: 20110208

REACTIONS (1)
  - ACUTE GENERALISED EXANTHEMATOUS PUSTULOSIS [None]
